FAERS Safety Report 6612497-7 (Version None)
Quarter: 2010Q1

REPORT INFORMATION
  Report Type: 
  Country: None (occurrence: None)
  Receive Date: 20100223
  Receipt Date: 20100217
  Transmission Date: 20100710
  Serious: Yes (Hospitalization)
  Sender: FDA-Public Use
  Company Number: 2009SP043141

PATIENT
  Age: 68 Year
  Sex: Female
  Weight: 56 kg

DRUGS (16)
  1. REBETOL [Suspect]
     Indication: HEPATITIS C
     Dosage: 600 MG; QD; PO
     Route: 048
     Dates: start: 20091109, end: 20091205
  2. INTERFERON [Suspect]
     Indication: HEPATITIS C
     Dosage: 6 MIU; QD; INDRP, 6 MIU; TIW; INDRP
     Route: 041
     Dates: end: 20091202
  3. INTERFERON [Suspect]
     Indication: HEPATITIS C
     Dosage: 6 MIU; QD; INDRP, 6 MIU; TIW; INDRP
     Route: 041
     Dates: start: 20091109
  4. LOXOPROFEN [Concomitant]
  5. MUCOSTA [Concomitant]
  6. PARIET [Concomitant]
  7. DESMOPRESSIN ACETATE [Concomitant]
  8. METLIGINE [Concomitant]
  9. DETRUSITOL [Concomitant]
  10. HOKUNALIN [Concomitant]
  11. NELBON [Concomitant]
  12. DEPAS [Concomitant]
  13. LENDORMIN [Concomitant]
  14. ZOLOFT [Concomitant]
  15. URSO 250 [Concomitant]
  16. FLOMOX [Concomitant]

REACTIONS (9)
  - ABNORMAL BEHAVIOUR [None]
  - AGGRESSION [None]
  - CONDITION AGGRAVATED [None]
  - DISSOCIATIVE DISORDER [None]
  - HALLUCINATION [None]
  - NO THERAPEUTIC RESPONSE [None]
  - PORIOMANIA [None]
  - SCHIZOPHRENIA [None]
  - SPEECH DISORDER [None]
